FAERS Safety Report 25862900 (Version 2)
Quarter: 2025Q4

REPORT INFORMATION
  Report Type: Spontaneous
  Country: US (occurrence: US)
  Receive Date: 20250930
  Receipt Date: 20251201
  Transmission Date: 20260118
  Serious: No
  Sender: STALLERGENES
  Company Number: US-STALCOR-2025-AER-02678

PATIENT
  Age: 70 Year
  Sex: Male
  Weight: 78.02 kg

DRUGS (14)
  1. WHITE ASH POLLEN [Suspect]
     Active Substance: FRAXINUS AMERICANA POLLEN
     Indication: Product used for unknown indication
     Route: 058
  2. SWEETGUM POLLEN [Suspect]
     Active Substance: LIQUIDAMBAR STYRACIFLUA POLLEN
     Indication: Product used for unknown indication
     Route: 058
  3. SHAGBARK HICKORY POLLEN [Suspect]
     Active Substance: CARYA OVATA POLLEN
     Indication: Product used for unknown indication
     Route: 058
  4. BALD CYPRESS POLLEN [Suspect]
     Active Substance: TAXODIUM DISTICHUM POLLEN
     Indication: Product used for unknown indication
     Route: 058
  5. EASTERN COTTONWOOD POLLEN [Suspect]
     Active Substance: POPULUS DELTOIDES POLLEN
     Indication: Product used for unknown indication
     Route: 058
  6. SWEET VERNAL GRASS, STANDARDIZED [Suspect]
     Active Substance: ANTHOXANTHUM ODORATUM POLLEN
     Indication: Product used for unknown indication
     Route: 058
  7. TIMOTHY, STANDARDIZED [Suspect]
     Active Substance: PHLEUM PRATENSE POLLEN
     Indication: Product used for unknown indication
     Route: 058
  8. JOHNSON GRASS POLLEN [Suspect]
     Active Substance: SORGHUM HALEPENSE POLLEN
     Indication: Product used for unknown indication
     Route: 058
  9. STANDARDIZED MEADOW FESCUE GRASS [Suspect]
     Active Substance: FESTUCA PRATENSIS POLLEN
     Indication: Product used for unknown indication
     Route: 058
  10. ENGLISH PLANTAIN POLLEN [Suspect]
     Active Substance: PLANTAGO LANCEOLATA POLLEN
     Indication: Product used for unknown indication
     Route: 058
  11. Normal Saline Diluent with HSA [Concomitant]
     Indication: Product used for unknown indication
     Route: 058
  12. MONTELUKAST [Concomitant]
     Active Substance: MONTELUKAST
     Indication: Product used for unknown indication
  13. ALBUTEROL SULFATE [Concomitant]
     Active Substance: ALBUTEROL SULFATE
     Indication: Product used for unknown indication
  14. TRELEGY ELLIPTA [Concomitant]
     Active Substance: FLUTICASONE FUROATE\UMECLIDINIUM BROMIDE\VILANTEROL TRIFENATATE
     Indication: Product used for unknown indication

REACTIONS (4)
  - Malaise [Recovered/Resolved]
  - Urticaria [Recovered/Resolved]
  - Pruritus [Recovered/Resolved]
  - Wrong patient received product [Recovered/Resolved]

NARRATIVE: CASE EVENT DATE: 20250829
